FAERS Safety Report 6101640-4 (Version None)
Quarter: 2009Q1

REPORT INFORMATION
  Report Type: 
  Country: None (occurrence: None)
  Receive Date: 20090227
  Receipt Date: 20090219
  Transmission Date: 20090719
  Serious: Yes (Other)
  Sender: FDA-Public Use
  Company Number: CHPA2009US04977

PATIENT
  Age: 14 Year
  Sex: Female

DRUGS (1)
  1. EXCEDRIN (MIGRAINE) [Suspect]
     Indication: MIGRAINE
     Dosage: 1 DF, ONCE/SINGLE, ORAL
     Route: 048
     Dates: start: 20090218, end: 20090218

REACTIONS (3)
  - DRUG HYPERSENSITIVITY [None]
  - HAEMATEMESIS [None]
  - INCORRECT DOSE ADMINISTERED [None]
